FAERS Safety Report 9712789 (Version 1)
Quarter: 2013Q4

REPORT INFORMATION
  Report Type: Spontaneous
  Country: US (occurrence: US)
  Receive Date: 20131126
  Receipt Date: 20131126
  Transmission Date: 20140711
  Serious: No
  Sender: FDA-Public Use
  Company Number: US-BRISTOL-MYERS SQUIBB COMPANY-19235886

PATIENT
  Age: 56 Year
  Sex: Female
  Weight: 104.31 kg

DRUGS (4)
  1. BYDUREON [Suspect]
     Indication: TYPE 2 DIABETES MELLITUS
     Route: 058
     Dates: start: 20130722, end: 20130827
  2. METFORMIN HCL TABS [Suspect]
  3. LANTUS [Suspect]
  4. HUMALOG [Suspect]

REACTIONS (2)
  - Pruritus [Unknown]
  - Blood glucose decreased [Unknown]
